FAERS Safety Report 4487791-9 (Version None)
Quarter: 2004Q4

REPORT INFORMATION
  Report Type: 
  Country: None (occurrence: None)
  Receive Date: 20041027
  Receipt Date: 20041027
  Transmission Date: 20050328
  Serious: Yes (Death)
  Sender: FDA-Public Use
  Company Number: None

PATIENT
  Age: 4 Month
  Sex: Female
  Weight: 5.8968 kg

DRUGS (1)
  1. XOPENEX [Suspect]
     Indication: PNEUMONIA
     Dosage: 0.63MG   EVERY 8HRS
     Dates: start: 20011016, end: 20011024

REACTIONS (1)
  - CARDIAC ARREST [None]
